FAERS Safety Report 6864987-X (Version None)
Quarter: 2010Q3

REPORT INFORMATION
  Report Type: 
  Country: None (occurrence: None)
  Receive Date: 20100721
  Receipt Date: 20080409
  Transmission Date: 20110219
  Serious: No
  Sender: FDA-Public Use
  Company Number: US-PFIZER INC-2008032594

PATIENT
  Sex: Female
  Weight: 56.4 kg

DRUGS (6)
  1. CHANTIX [Suspect]
     Indication: SMOKING CESSATION THERAPY
     Route: 048
     Dates: start: 20080301
  2. ASACOL [Concomitant]
  3. LOVAZA [Concomitant]
  4. MULTI-VITAMINS [Concomitant]
  5. VITAMIN E [Concomitant]
  6. VITAMIN C [Concomitant]

REACTIONS (4)
  - ABNORMAL DREAMS [None]
  - INSOMNIA [None]
  - PRURITUS [None]
  - RASH [None]
